FAERS Safety Report 9394850 (Version 7)
Quarter: 2014Q4

REPORT INFORMATION
  Report Type: Report from Study
  Country: CZ (occurrence: CZ)
  Receive Date: 20130711
  Receipt Date: 20141001
  Transmission Date: 20150529
  Serious: Yes (Hospitalization)
  Sender: FDA-Public Use
  Company Number: CZ-JNJFOC-20130702595

PATIENT
  Age: 74 Year
  Sex: Male
  Weight: 92 kg

DRUGS (9)
  1. GLIMEPIRIDE. [Concomitant]
     Active Substance: GLIMEPIRIDE
     Indication: TYPE 2 DIABETES MELLITUS
     Dates: start: 20050418
  2. CANAGLIFLOZIN [Suspect]
     Active Substance: CANAGLIFLOZIN
     Route: 048
  3. CANAGLIFLOZIN [Suspect]
     Active Substance: CANAGLIFLOZIN
     Indication: TYPE 2 DIABETES MELLITUS
     Route: 048
     Dates: start: 20101116, end: 20130218
  4. TROSPIUM CHLORIDE. [Concomitant]
     Active Substance: TROSPIUM CHLORIDE
     Indication: DYSPEPSIA
     Route: 048
     Dates: start: 2005
  5. APO-OME [Concomitant]
     Indication: DYSPEPSIA
     Route: 048
     Dates: start: 2009
  6. FOKUSIN [Concomitant]
     Indication: BENIGN PROSTATIC HYPERPLASIA
     Route: 048
     Dates: start: 2005
  7. NOVOMIX 30 [Concomitant]
     Active Substance: INSULIN ASPART
     Indication: TYPE 2 DIABETES MELLITUS
     Dates: start: 20130325
  8. TRITACE [Concomitant]
     Active Substance: RAMIPRIL
     Indication: HYPERTENSION
     Route: 048
     Dates: start: 20071101
  9. VITAMIN C [Concomitant]
     Active Substance: ASCORBIC ACID
     Route: 048
     Dates: start: 201212

REACTIONS (1)
  - Bladder transitional cell carcinoma [Recovered/Resolved]

NARRATIVE: CASE EVENT DATE: 20130510
